FAERS Safety Report 4292419-7 (Version None)
Quarter: 2004Q1

REPORT INFORMATION
  Report Type: 
  Country: None (occurrence: None)
  Receive Date: 20040126
  Receipt Date: 20030902
  Transmission Date: 20041129
  Serious: No
  Sender: FDA-Public Use
  Company Number: USA030946038

PATIENT
  Age: 50 Year
  Sex: Female

DRUGS (3)
  1. FORTEO [Suspect]
     Dosage: 20UG/DAY
     Dates: start: 20030201
  2. ZOLOFT [Concomitant]
  3. VITAMIN D [Concomitant]
     Dosage: 50000 IU

REACTIONS (2)
  - MUSCULOSKELETAL DISCOMFORT [None]
  - VITAMIN D DECREASED [None]
